FAERS Safety Report 6178939-9 (Version None)
Quarter: 2009Q2

REPORT INFORMATION
  Report Type: 
  Country: None (occurrence: None)
  Receive Date: 20090505
  Receipt Date: 20090427
  Transmission Date: 20091009
  Serious: Yes (Other)
  Sender: FDA-Public Use
  Company Number: US-BAYER-200919328NA

PATIENT
  Sex: Female

DRUGS (3)
  1. BETASERON [Suspect]
     Indication: SECONDARY PROGRESSIVE MULTIPLE SCLEROSIS
     Route: 058
     Dates: start: 19951218, end: 19981215
  2. BETASERON [Suspect]
     Route: 058
     Dates: start: 20081226, end: 20090320
  3. BETASERON [Suspect]
     Dosage: TOTAL DAILY DOSE: 4 MIU
     Route: 058
     Dates: start: 20090330

REACTIONS (6)
  - BLOOD PRESSURE INCREASED [None]
  - DEPRESSED MOOD [None]
  - FATIGUE [None]
  - HYPERTONIA [None]
  - IRRITABILITY [None]
  - MUSCLE SPASTICITY [None]
